FAERS Safety Report 9105982 (Version 1)
Quarter: 2013Q1

REPORT INFORMATION
  Report Type: Spontaneous
  Country: AU (occurrence: AU)
  Receive Date: 20130220
  Receipt Date: 20130220
  Transmission Date: 20140127
  Serious: Yes (Disabling)
  Sender: FDA-Public Use
  Company Number: AU-PFIZER INC-2013063925

PATIENT
  Age: 72 Year
  Sex: Female

DRUGS (3)
  1. RAMIPRIL [Suspect]
     Indication: PRODUCT USED FOR UNKNOWN INDICATION
     Dosage: UNK
     Route: 065
  2. KARVEA [Suspect]
     Indication: BLOOD PRESSURE
     Dosage: 150 MG, DAILY
     Route: 065
  3. KARVEA [Suspect]
     Dosage: 150 MG, DAILY
     Route: 065
     Dates: start: 20121015, end: 20121022

REACTIONS (4)
  - Rash pruritic [Unknown]
  - Fatigue [Unknown]
  - Rash [Unknown]
  - Cough [Unknown]
